FAERS Safety Report 23375942 (Version 1)
Quarter: 2024Q1

REPORT INFORMATION
  Report Type: Report from Study
  Country: AR (occurrence: AR)
  Receive Date: 20240108
  Receipt Date: 20240108
  Transmission Date: 20240410
  Serious: Yes (Other)
  Sender: FDA-Public Use
  Company Number: AR-ABBVIE-5574672

PATIENT
  Sex: Female

DRUGS (1)
  1. SKYRIZI [Suspect]
     Active Substance: RISANKIZUMAB-RZAA
     Indication: Psoriasis
     Route: 058
     Dates: start: 20210528

REACTIONS (4)
  - Glaucoma [Not Recovered/Not Resolved]
  - Corneal oedema [Not Recovered/Not Resolved]
  - Macular oedema [Not Recovered/Not Resolved]
  - Retinal oedema [Not Recovered/Not Resolved]
